FAERS Safety Report 23898339 (Version 5)
Quarter: 2025Q1

REPORT INFORMATION
  Report Type: Spontaneous
  Country: CH (occurrence: CH)
  Receive Date: 20240524
  Receipt Date: 20250312
  Transmission Date: 20250409
  Serious: Yes (Death, Hospitalization, Other)
  Sender: TAKEDA
  Company Number: CH-TAKEDA-2024TUS049868

PATIENT
  Age: 66 Year
  Sex: Female
  Weight: 71 kg

DRUGS (23)
  1. FRUQUINTINIB [Suspect]
     Active Substance: FRUQUINTINIB
     Indication: Rectal adenocarcinoma
     Dates: start: 20240327, end: 20240517
  2. FRUQUINTINIB [Suspect]
     Active Substance: FRUQUINTINIB
  3. FENTANYL [Concomitant]
     Active Substance: FENTANYL
     Indication: Pain
  4. FENTANYL [Concomitant]
     Active Substance: FENTANYL
  5. FENTANYL [Concomitant]
     Active Substance: FENTANYL
  6. Novalgin [Concomitant]
  7. ELIQUIS [Concomitant]
     Active Substance: APIXABAN
  8. PANTOPRAZOLE SODIUM [Concomitant]
     Active Substance: PANTOPRAZOLE SODIUM
  9. SODIUM PICOSULFATE [Concomitant]
     Active Substance: SODIUM PICOSULFATE
  10. OXAZEPAM [Concomitant]
     Active Substance: OXAZEPAM
  11. CALCIUM\CHOLECALCIFEROL [Concomitant]
     Active Substance: CALCIUM\CHOLECALCIFEROL
  12. UREA [Concomitant]
     Active Substance: UREA
     Route: 061
  13. Malveol [Concomitant]
  14. CLOBETASOL [Concomitant]
     Active Substance: CLOBETASOL
     Route: 061
  15. POLYETHYLENE GLYCOL 3350\POTASSIUM CHLORIDE\SODIUM BICARBONATE\SODIUM [Concomitant]
     Active Substance: POLYETHYLENE GLYCOL 3350\POTASSIUM CHLORIDE\SODIUM BICARBONATE\SODIUM CHLORIDE
     Indication: Constipation
  16. Transipeg [Concomitant]
     Indication: Constipation
  17. IMODIUM [Concomitant]
     Active Substance: LOPERAMIDE HYDROCHLORIDE
     Indication: Diarrhoea
  18. PERENTEROL [Concomitant]
     Active Substance: SACCHAROMYCES CEREVISIAE
     Indication: Diarrhoea
  19. RHUBARB\SALICYLIC ACID [Concomitant]
     Active Substance: RHUBARB\SALICYLIC ACID
     Indication: Oral disorder
     Dosage: 10 MILLIGRAM, TID
  20. IBUPROFEN [Concomitant]
     Active Substance: IBUPROFEN
     Indication: Pain
     Dosage: 400 MILLIGRAM, TID
  21. DAFALGAN [Concomitant]
     Active Substance: ACETAMINOPHEN
     Indication: Pain
     Dosage: 1 GRAM, TID
  22. MORPHINE [Concomitant]
     Active Substance: MORPHINE
     Indication: Pain
     Dosage: UNK, QID
  23. LEVOCETIRIZINE DIHYDROCHLORIDE [Concomitant]
     Active Substance: LEVOCETIRIZINE DIHYDROCHLORIDE
     Indication: Pruritus
     Dosage: 5 MILLIGRAM, BID

REACTIONS (7)
  - Rectal adenocarcinoma [Fatal]
  - Pain [Unknown]
  - Hepatic cytolysis [Unknown]
  - Hyperthermia [Recovered/Resolved]
  - Hepatotoxicity [Unknown]
  - Jaundice [Unknown]
  - Cholestatic liver injury [Unknown]

NARRATIVE: CASE EVENT DATE: 20240507
